FAERS Safety Report 21355347 (Version 1)
Quarter: 2022Q3

REPORT INFORMATION
  Report Type: Spontaneous
  Country: DE (occurrence: None)
  Receive Date: 20220920
  Receipt Date: 20220920
  Transmission Date: 20221027
  Serious: Yes (Hospitalization, Other)
  Sender: FDA-Public Use
  Company Number: 2022A317704

PATIENT
  Age: 45 Year
  Sex: Female

DRUGS (11)
  1. TICAGRELOR [Suspect]
     Active Substance: TICAGRELOR
     Route: 048
  2. ASPIRIN [Concomitant]
     Active Substance: ASPIRIN
     Route: 065
  3. BISOPROLOL [Concomitant]
     Active Substance: BISOPROLOL
     Route: 065
  4. RAMIPRIL [Concomitant]
     Active Substance: RAMIPRIL
     Route: 065
  5. RAMIPRIL [Concomitant]
     Active Substance: RAMIPRIL
     Route: 065
  6. ATORVASATIN [Concomitant]
  7. ATORVASATIN [Concomitant]
     Route: 065
  8. TORSEMIDE [Concomitant]
     Active Substance: TORSEMIDE
     Dosage: ACCORDING TO TRAINING RECOMMENDATION OF ADDITIONAL INTAKE OF UP TO
     Route: 065
  9. PROCOROLAN [Concomitant]
     Dosage: HF } 70 / MIN AND NOT RR-EFFECTIVE
     Route: 065
  10. DAPAGLIFLOZIN [Concomitant]
     Active Substance: DAPAGLIFLOZIN
     Dosage: INCLUDING NEPHRO-PROTECTION
     Route: 065
  11. EPLERENONE [Concomitant]
     Active Substance: EPLERENONE
     Route: 065

REACTIONS (2)
  - Cardiac failure [Unknown]
  - Sinus tachycardia [Unknown]
